FAERS Safety Report 8607049 (Version 2)
Quarter: 2013Q2

REPORT INFORMATION
  Report Type: Spontaneous
  Country: US (occurrence: US)
  Receive Date: 20120611
  Receipt Date: 20130617
  Transmission Date: 20140414
  Serious: Yes (Hospitalization, Disabling)
  Sender: FDA-Public Use
  Company Number: US-ASTRAZENECA-2012SE34527

PATIENT
  Sex: Female

DRUGS (27)
  1. NEXIUM [Suspect]
     Indication: GASTROOESOPHAGEAL REFLUX DISEASE
     Dosage: A DAY
     Route: 048
  2. NEXIUM [Suspect]
     Indication: GASTROOESOPHAGEAL REFLUX DISEASE
     Route: 048
     Dates: start: 20050531
  3. NEXIUM [Suspect]
     Indication: GASTROOESOPHAGEAL REFLUX DISEASE
     Dosage: 2 TIMES A DAY
     Route: 048
     Dates: start: 20051201, end: 2010
  4. LANSOPRAZOLE/PREVACID [Concomitant]
     Dosage: 1 PILL EVERYDAY
  5. ACIPHEX [Concomitant]
     Dosage: 1 PILL EVERYDAY
  6. ZANTAC OTC [Concomitant]
     Dosage: 1 A DAY
  7. PEPCID [Concomitant]
     Dosage: 1 A DAY
     Dates: start: 2005
  8. PEPTO-BISMOL [Concomitant]
     Dosage: 1 A DAY
     Dates: start: 2005
  9. MYLANTA [Concomitant]
     Dates: start: 2010
  10. MILK OF MAGNESIA [Concomitant]
     Dates: start: 2010
  11. DIOVAN HCT [Concomitant]
  12. METFORMIN [Concomitant]
  13. NAPROXEN [Concomitant]
  14. MELOXICAM [Concomitant]
  15. PROMETH/COD [Concomitant]
  16. TRAMADOL HCL [Concomitant]
  17. TAMIFLU [Concomitant]
  18. LOVASTATIN [Concomitant]
  19. MUCINEX [Concomitant]
  20. FISH OIL [Concomitant]
  21. DOXYCYCLINE [Concomitant]
  22. FLOVENT HFA [Concomitant]
  23. CEPHALEXIN [Concomitant]
  24. IBUPROFEN [Concomitant]
  25. TYLENOL [Concomitant]
  26. SYSTANE BALANCE [Concomitant]
  27. FLUOROMETHOL [Concomitant]

REACTIONS (14)
  - Ligament sprain [Unknown]
  - Viral infection [Unknown]
  - Acute sinusitis [Unknown]
  - Bronchitis [Unknown]
  - Arthralgia [Unknown]
  - Abdominal pain [Unknown]
  - Osteoporosis [Unknown]
  - Multiple fractures [Unknown]
  - Joint stiffness [Unknown]
  - Glaucoma [Unknown]
  - Osteogenesis imperfecta [Unknown]
  - Cataract [Unknown]
  - Lung disorder [Unknown]
  - Arthritis [Unknown]
